FAERS Safety Report 21735691 (Version 3)
Quarter: 2022Q4

REPORT INFORMATION
  Report Type: Report from Study
  Country: ES (occurrence: ES)
  Receive Date: 20221215
  Receipt Date: 20221230
  Transmission Date: 20230113
  Serious: Yes (Death, Hospitalization)
  Sender: FDA-Public Use
  Company Number: ES-PFIZER INC-PV202200089741

PATIENT
  Age: 57 Year
  Sex: Male

DRUGS (1)
  1. ABROCITINIB [Suspect]
     Active Substance: ABROCITINIB
     Indication: Dermatitis atopic
     Dosage: 100 MG, 1X/DAY
     Route: 048
     Dates: start: 20190823, end: 20221010

REACTIONS (1)
  - Metastases to meninges [Fatal]

NARRATIVE: CASE EVENT DATE: 20221019
